FAERS Safety Report 22344415 (Version 1)
Quarter: 2023Q2

REPORT INFORMATION
  Report Type: Spontaneous
  Country: GB (occurrence: None)
  Receive Date: 20230519
  Receipt Date: 20230519
  Transmission Date: 20230721
  Serious: Yes (Death, Other)
  Sender: FDA-Public Use
  Company Number: GB-Merck Healthcare KGaA-9403186

PATIENT
  Sex: Male

DRUGS (1)
  1. AVELUMAB [Suspect]
     Active Substance: AVELUMAB
     Indication: Product used for unknown indication
     Dosage: 9 MONTHS ON MAINTENANCE

REACTIONS (3)
  - Encephalitis [Fatal]
  - Lower respiratory tract infection [Fatal]
  - Metastases to central nervous system [Unknown]
